FAERS Safety Report 7917783-6 (Version None)
Quarter: 2011Q4

REPORT INFORMATION
  Report Type: 
  Country: None (occurrence: None)
  Receive Date: 20111116
  Receipt Date: 20110930
  Transmission Date: 20120403
  Serious: Yes (Death)
  Sender: FDA-Public Use
  Company Number: JP-ROCHE-761656

PATIENT
  Sex: Female

DRUGS (32)
  1. ACTEMRA [Suspect]
     Route: 041
     Dates: start: 20090515, end: 20090515
  2. ACTEMRA [Suspect]
     Route: 041
     Dates: start: 20090710, end: 20090710
  3. ACTEMRA [Suspect]
     Route: 041
     Dates: start: 20091030, end: 20091030
  4. ACTEMRA [Suspect]
     Route: 041
     Dates: start: 20100219, end: 20100219
  5. ACTEMRA [Suspect]
     Route: 041
     Dates: start: 20100624, end: 20100624
  6. LAFUTIDINE [Suspect]
     Indication: GASTRITIS
     Route: 048
  7. PURSENNID [Concomitant]
     Route: 048
     Dates: start: 20100726
  8. KETOPROFEN [Concomitant]
     Dosage: DOSE FORM: TAPE
     Route: 062
  9. LIVALO [Concomitant]
     Route: 048
     Dates: start: 20100726
  10. ONEALFA [Concomitant]
     Route: 048
  11. DICLOFENAC SODIUM [Concomitant]
     Dosage: DOSE FORM: SUPPOSITORIAE RECTALE
     Route: 054
  12. ACTEMRA [Suspect]
     Route: 041
     Dates: start: 20090612, end: 20090612
  13. ACTEMRA [Suspect]
     Route: 041
     Dates: start: 20100122, end: 20100122
  14. METHOTREXATE [Concomitant]
     Route: 048
  15. FOLIC ACID [Concomitant]
     Route: 048
  16. ACTEMRA [Suspect]
     Route: 041
     Dates: start: 20091002, end: 20091002
  17. ACTEMRA [Suspect]
     Route: 041
     Dates: start: 20091225, end: 20091225
  18. ACTEMRA [Suspect]
     Route: 041
     Dates: start: 20100421, end: 20100421
  19. ZOLPIDEM [Concomitant]
     Route: 048
  20. ACTEMRA [Suspect]
     Route: 041
     Dates: start: 20100324, end: 20100324
  21. ACTEMRA [Suspect]
     Route: 041
     Dates: start: 20100527, end: 20100527
  22. ROHYPNOL [Concomitant]
     Route: 048
     Dates: start: 20100726
  23. ACTEMRA [Suspect]
     Indication: RHEUMATOID ARTHRITIS
     Route: 041
     Dates: start: 20090418, end: 20090418
  24. ASPARA-CA [Concomitant]
     Route: 048
  25. ACTEMRA [Suspect]
     Route: 041
     Dates: start: 20090807, end: 20090807
  26. ACTEMRA [Suspect]
     Route: 041
     Dates: start: 20091127, end: 20091127
  27. ACTEMRA [Suspect]
     Route: 041
     Dates: start: 20100722, end: 20100722
  28. SUCRALFATE [Concomitant]
     Dosage: DOSAGE FORM: MINUTE GRAINS.
     Route: 048
  29. SALCOAT [Concomitant]
     Route: 048
  30. ACTEMRA [Suspect]
     Route: 041
     Dates: start: 20090904, end: 20090904
  31. PREDNISOLONE [Concomitant]
     Route: 048
  32. PERSANTIN [Concomitant]
     Route: 048
     Dates: start: 20100726

REACTIONS (2)
  - AORTIC DISSECTION [None]
  - CEREBRAL INFARCTION [None]
